FAERS Safety Report 5872169-3 (Version None)
Quarter: 2008Q3

REPORT INFORMATION
  Report Type: 
  Country: None (occurrence: None)
  Receive Date: 20080905
  Receipt Date: 20080826
  Transmission Date: 20090109
  Serious: Yes (Hospitalization, Other)
  Sender: FDA-Public Use
  Company Number: US-AVENTIS-200814136US

PATIENT
  Sex: Female
  Weight: 63 kg

DRUGS (10)
  1. TAXOTERE [Suspect]
     Indication: BREAST CANCER
     Route: 042
     Dates: start: 20080623, end: 20080623
  2. TAXOTERE [Suspect]
     Route: 042
     Dates: start: 20080602, end: 20080602
  3. CYCLOPHOSPHAMIDE [Suspect]
     Route: 042
     Dates: start: 20080602
  4. NEULASTA [Suspect]
     Indication: NEUTROPENIA
     Route: 058
     Dates: start: 20080625, end: 20080625
  5. ZANTAC [Concomitant]
     Dates: start: 20080509
  6. MIRALAX [Concomitant]
     Indication: CONSTIPATION
     Dosage: DOSE: UNK
  7. ALOXI [Concomitant]
     Route: 042
     Dates: start: 20080602
  8. DECADRON [Concomitant]
     Indication: CHEMOTHERAPY
     Route: 042
     Dates: start: 20080602
  9. MIRALAX [Concomitant]
     Dosage: DOSE: UNK
     Dates: start: 20080602
  10. MYLANTA                            /00036701/ [Concomitant]
     Dosage: DOSE: UNK
     Dates: start: 20080602

REACTIONS (15)
  - ALOPECIA [None]
  - AMNESIA [None]
  - CHEST DISCOMFORT [None]
  - CONFUSIONAL STATE [None]
  - CONTUSION [None]
  - DYSPNOEA [None]
  - FALL [None]
  - FEELING ABNORMAL [None]
  - FLUSHING [None]
  - HAEMATOMA [None]
  - HAEMORRHAGE INTRACRANIAL [None]
  - HEAD INJURY [None]
  - HYPERSENSITIVITY [None]
  - LOSS OF CONSCIOUSNESS [None]
  - RASH ERYTHEMATOUS [None]
